FAERS Safety Report 23709622 (Version 3)
Quarter: 2024Q2

REPORT INFORMATION
  Report Type: Report from Study
  Country: JP (occurrence: JP)
  Receive Date: 20240404
  Receipt Date: 20240625
  Transmission Date: 20240716
  Serious: Yes (Life-Threatening, Hospitalization)
  Sender: FDA-Public Use
  Company Number: JP-MTPC-MTPC2024-0006971

PATIENT
  Age: 73 Year
  Sex: Female

DRUGS (9)
  1. RADICAVA ORS [Suspect]
     Active Substance: EDARAVONE
     Indication: Amyotrophic lateral sclerosis
     Dosage: 105 MILLIGRAM, QD
     Route: 048
     Dates: start: 20230823, end: 20230905
  2. RADICAVA ORS [Suspect]
     Active Substance: EDARAVONE
     Indication: Amyotrophic lateral sclerosis
     Dosage: 105 MILLIGRAM, QD
     Route: 048
     Dates: start: 20230823, end: 20230905
  3. RADICAVA ORS [Suspect]
     Active Substance: EDARAVONE
     Dosage: 105 MILLIGRAM, QD
     Route: 048
     Dates: start: 20231127, end: 20231208
  4. RADICAVA ORS [Suspect]
     Active Substance: EDARAVONE
     Dosage: 105 MILLIGRAM, QD
     Route: 048
     Dates: start: 20231127, end: 20231208
  5. RADICAVA ORS [Suspect]
     Active Substance: EDARAVONE
     Dosage: 105 MILLIGRAM, QD
     Route: 048
     Dates: start: 20231225, end: 20240105
  6. RADICAVA ORS [Suspect]
     Active Substance: EDARAVONE
     Dosage: 105 MILLIGRAM, QD
     Route: 048
     Dates: start: 20231225, end: 20240105
  7. RILUZOLE [Suspect]
     Active Substance: RILUZOLE
     Indication: Amyotrophic lateral sclerosis
     Dosage: 100 MILLIGRAM, QD
     Route: 065
     Dates: end: 20230907
  8. AMLODIPINE [Concomitant]
     Active Substance: AMLODIPINE BESYLATE
     Dosage: 2.5 MILLIGRAM, QD
     Route: 048
  9. LEVOTHYROXINE [Concomitant]
     Active Substance: LEVOTHYROXINE\LEVOTHYROXINE SODIUM
     Dosage: 50 MICROGRAM, QD
     Route: 048

REACTIONS (2)
  - Cardiac failure congestive [Recovering/Resolving]
  - Atrial fibrillation [Recovering/Resolving]

NARRATIVE: CASE EVENT DATE: 20230915
